FAERS Safety Report 16341038 (Version 4)
Quarter: 2019Q2

REPORT INFORMATION
  Report Type: Spontaneous
  Country: JP (occurrence: JP)
  Receive Date: 20190522
  Receipt Date: 20190621
  Transmission Date: 20190711
  Serious: Yes (Life-Threatening, Hospitalization, Other)
  Sender: FDA-Public Use
  Company Number: JP-AMGEN-JPNSP2019079079

PATIENT
  Age: 63 Year
  Sex: Male
  Weight: 58.2 kg

DRUGS (3)
  1. PARSABIV [Suspect]
     Active Substance: ETELCALCETIDE HYDROCHLORIDE
     Indication: HYPERPARATHYROIDISM SECONDARY
     Dosage: 5 MILLIGRAM, 3 TIMES/WK (5 MG, Q56H)
     Route: 010
     Dates: start: 20181001
  2. OXAROL [Concomitant]
     Active Substance: MAXACALCITOL
     Dosage: 5 MICROGRAM, 3 TIMES/WK (5 MUG, Q56H)
     Route: 042
  3. FERROUS CITRATE NA [Concomitant]
     Active Substance: SODIUM FERROUS CITRATE
     Dosage: 50 MILLIGRAM, QD (50 MG, EVERYDAY)
     Route: 048

REACTIONS (3)
  - Rib fracture [Recovered/Resolved]
  - Traumatic haemothorax [Recovered/Resolved]
  - Sternal fracture [Recovered/Resolved]

NARRATIVE: CASE EVENT DATE: 20190319
